FAERS Safety Report 5495566-7 (Version None)
Quarter: 2007Q4

REPORT INFORMATION
  Report Type: 
  Country: None (occurrence: None)
  Receive Date: 20071025
  Receipt Date: 20071015
  Transmission Date: 20080405
  Serious: Yes (Other)
  Sender: FDA-Public Use
  Company Number: PHFR2007GB03049

PATIENT

DRUGS (1)
  1. CARBAMAZEPINE [Suspect]
     Route: 065

REACTIONS (1)
  - HELICOBACTER INFECTION [None]
